FAERS Safety Report 7557347-X (Version None)
Quarter: 2011Q2

REPORT INFORMATION
  Report Type: 
  Country: None (occurrence: None)
  Receive Date: 20110620
  Receipt Date: 20110608
  Transmission Date: 20111010
  Serious: Yes (Other)
  Sender: FDA-Public Use
  Company Number: PHEH2011US00486

PATIENT
  Sex: Female

DRUGS (1)
  1. ZOMETA [Suspect]
     Dosage: 4MG Q 28DAYS
     Route: 041
     Dates: start: 20031001, end: 20070323

REACTIONS (6)
  - SUBDURAL HAEMATOMA [None]
  - DYSURIA [None]
  - FATIGUE [None]
  - CONSTIPATION [None]
  - HYPOAESTHESIA [None]
  - INSOMNIA [None]
